FAERS Safety Report 6446901-4 (Version None)
Quarter: 2009Q4

REPORT INFORMATION
  Report Type: 
  Country: None (occurrence: None)
  Receive Date: 20091119
  Receipt Date: 20091020
  Transmission Date: 20100525
  Serious: No
  Sender: FDA-Public Use
  Company Number: US-BAYER-200915838BCC

PATIENT
  Age: 80 Year
  Sex: Female
  Weight: 41 kg

DRUGS (14)
  1. ALEVE (CAPLET) [Suspect]
     Indication: BACK PAIN
     Dosage: TOTAL DAILY DOSE: 440 MG  UNIT DOSE: 220 MG
     Route: 048
     Dates: start: 20091019, end: 20091019
  2. ALEVE (CAPLET) [Suspect]
     Dosage: TOTAL DAILY DOSE: 220 MG  UNIT DOSE: 220 MG
     Route: 048
     Dates: start: 20091020
  3. NEXIUM [Concomitant]
     Route: 065
  4. LEVOTHYROXINE SODIUM [Concomitant]
     Route: 065
  5. CRESTOR [Concomitant]
     Route: 065
  6. CITALOPRAM HYDROBROMIDE [Concomitant]
     Route: 065
  7. PREDNISONE [Concomitant]
     Route: 065
  8. LASIX [Concomitant]
     Route: 065
  9. LASIX [Concomitant]
     Route: 065
  10. DIAMOX SRC [Concomitant]
     Route: 065
  11. ASPIRIN [Concomitant]
     Route: 065
  12. FOLIC ACID [Concomitant]
     Route: 065
  13. VITAMIN B6 [Concomitant]
     Route: 065
  14. POTASSIUM CHLORIDE [Concomitant]
     Route: 065

REACTIONS (1)
  - BACK PAIN [None]
